FAERS Safety Report 9316694 (Version 1)
Quarter: 2013Q2

REPORT INFORMATION
  Report Type: Report from Study
  Country: CA (occurrence: CA)
  Receive Date: 20130530
  Receipt Date: 20130530
  Transmission Date: 20140414
  Serious: Yes (Other)
  Sender: FDA-Public Use
  Company Number: CA-JNJFOC-20130516848

PATIENT
  Sex: Male
  Weight: 64.7 kg

DRUGS (4)
  1. REMICADE [Suspect]
     Indication: COLITIS ULCERATIVE
     Dosage: 13TH INFUSION
     Route: 042
     Dates: start: 20130313
  2. REMICADE [Suspect]
     Indication: COLITIS ULCERATIVE
     Route: 042
     Dates: start: 20110520
  3. IMURAN [Concomitant]
     Route: 048
  4. ASACOL [Concomitant]
     Route: 065

REACTIONS (1)
  - Inguinal hernia [Recovered/Resolved]
